FAERS Safety Report 8243130-9 (Version None)
Quarter: 2012Q1

REPORT INFORMATION
  Report Type: 
  Country: None (occurrence: None)
  Receive Date: 20120329
  Receipt Date: 20120319
  Transmission Date: 20120608
  Serious: Yes (Other)
  Sender: FDA-Public Use
  Company Number: FR-ABBOTT-12P-056-0916837-01

PATIENT
  Age: 26 Year
  Sex: Female

DRUGS (6)
  1. HUMIRA [Suspect]
  2. HUMIRA [Suspect]
     Dates: end: 20081101
  3. HUMIRA [Suspect]
     Indication: CROHN'S DISEASE
     Dosage: 160 MG BASELINE
     Route: 058
     Dates: start: 20080908, end: 20080908
  4. PHLOROGLUCINOL [Concomitant]
     Indication: ABDOMINAL PAIN
     Dates: start: 20081101
  5. AZATHIOPRINE [Concomitant]
     Indication: CROHN'S DISEASE
     Dates: start: 20060601
  6. ACETAMINOPHEN W/ PROPOXYPHENE HCL [Concomitant]
     Indication: ABDOMINAL PAIN
     Dates: start: 20081101

REACTIONS (3)
  - CAESAREAN SECTION [None]
  - MATERNAL EXPOSURE DURING PREGNANCY [None]
  - DRUG INEFFECTIVE [None]
